FAERS Safety Report 5642799-2 (Version None)
Quarter: 2008Q1

REPORT INFORMATION
  Report Type: 
  Country: None (occurrence: None)
  Receive Date: 20080131
  Receipt Date: 20071017
  Transmission Date: 20080703
  Serious: Yes (Hospitalization)
  Sender: FDA-Public Use
  Company Number: PHEH2007US13682

PATIENT
  Age: 78 Year
  Sex: Female

DRUGS (3)
  1. TEKTURNA [Suspect]
     Dosage: 150 MG, 300 MG
     Dates: end: 20070801
  2. LIPITOR [Concomitant]
  3. ZOLOFT [Concomitant]

REACTIONS (1)
  - HYPERTENSION [None]
